FAERS Safety Report 9384866 (Version 1)
Quarter: 2013Q3

REPORT INFORMATION
  Report Type: Spontaneous
  Country: JP (occurrence: JP)
  Receive Date: 20130705
  Receipt Date: 20130705
  Transmission Date: 20140515
  Serious: Yes (Other)
  Sender: FDA-Public Use
  Company Number: JP-JNJFOC-20130620204

PATIENT
  Sex: Female

DRUGS (4)
  1. INVEGA [Suspect]
     Indication: ASTHENIA
     Route: 048
  2. INVEGA [Suspect]
     Indication: ASTHENIA
     Route: 048
  3. INVEGA [Suspect]
     Indication: ASTHENIA
     Route: 048
  4. INVEGA [Suspect]
     Indication: ASTHENIA
     Route: 048

REACTIONS (8)
  - Hallucination, auditory [Unknown]
  - Brain compression [Unknown]
  - Constipation [Unknown]
  - Visual acuity reduced [Unknown]
  - Weight increased [Unknown]
  - Palpitations [Unknown]
  - Off label use [Unknown]
  - Restlessness [Unknown]
